FAERS Safety Report 15009179 (Version 1)
Quarter: 2018Q2

REPORT INFORMATION
  Report Type: Report from Study
  Country: None (occurrence: US)
  Receive Date: 20180614
  Receipt Date: 20180614
  Transmission Date: 20180711
  Serious: Yes (Other)
  Sender: FDA-Public Use
  Company Number: US-ABBVIE-18K-163-2384405-00

PATIENT
  Sex: Female

DRUGS (1)
  1. HUMIRA [Suspect]
     Active Substance: ADALIMUMAB
     Indication: RHEUMATOID ARTHRITIS
     Route: 058

REACTIONS (10)
  - Joint surgery [Unknown]
  - Epicondylitis [Unknown]
  - Tooth fracture [Unknown]
  - Foot deformity [Unknown]
  - Tenosynovitis stenosans [Unknown]
  - Skin papilloma [Unknown]
  - Foot deformity [Unknown]
  - Joint surgery [Unknown]
  - Synovectomy [Unknown]
  - Joint arthroplasty [Unknown]

NARRATIVE: CASE EVENT DATE: 2003
